FAERS Safety Report 8920999 (Version 2)
Quarter: 2012Q4

REPORT INFORMATION
  Report Type: 
  Country: DE (occurrence: US)
  Receive Date: 20121122
  Receipt Date: 20121127
  Transmission Date: 20130627
  Serious: Yes (Other)
  Sender: FDA-Public Use
  Company Number: US-RANBAXY-2012US-62434

PATIENT
  Sex: Female

DRUGS (4)
  1. PANTOPRAZOLE [Suspect]
     Indication: HYPERCHLORHYDRIA
     Dosage: UNK
     Route: 065
     Dates: start: 2011, end: 2011
  2. PROTONIX [Suspect]
     Indication: HYPERCHLORHYDRIA
     Dosage: 40 mg, qd
     Route: 048
     Dates: start: 2002
  3. PROTONIX [Suspect]
     Indication: HYPERCHLORHYDRIA
     Dosage: 40 mg, qd
     Route: 048
     Dates: start: 2011
  4. NEXIUM [Suspect]
     Indication: HYPERCHLORHYDRIA
     Dosage: UNK
     Route: 065

REACTIONS (3)
  - Nephrolithiasis [Recovered/Resolved]
  - Pain [Unknown]
  - Malaise [Unknown]
